FAERS Safety Report 11861126 (Version 1)
Quarter: 2015Q4

REPORT INFORMATION
  Report Type: Spontaneous
  Country: US (occurrence: US)
  Receive Date: 20151222
  Receipt Date: 20151222
  Transmission Date: 20160305
  Serious: No
  Sender: FDA-Public Use
  Company Number: US-AVANIR PHARMACEUTICALS, INC.-2011NUEUSA00042

PATIENT
  Age: 41 Year
  Sex: Female
  Weight: 106.58 kg

DRUGS (14)
  1. BACLOFEN. [Concomitant]
     Active Substance: BACLOFEN
  2. TRAMADOL. [Concomitant]
     Active Substance: TRAMADOL
  3. WELLBUTRIN [Concomitant]
     Active Substance: BUPROPION HYDROCHLORIDE
     Indication: DEPRESSION
  4. NUEDEXTA [Suspect]
     Active Substance: DEXTROMETHORPHAN HYDROBROMIDE\QUINIDINE SULFATE
     Indication: MULTIPLE SCLEROSIS
     Dosage: 1 CAP QD
     Route: 048
     Dates: start: 20110902, end: 201109
  5. FENTANYL. [Suspect]
     Active Substance: FENTANYL
     Dosage: 50 MCG, Q72H
     Route: 062
     Dates: start: 201109, end: 20110913
  6. TRAZODONE [Concomitant]
     Active Substance: TRAZODONE HYDROCHLORIDE
  7. NUEDEXTA [Suspect]
     Active Substance: DEXTROMETHORPHAN HYDROBROMIDE\QUINIDINE SULFATE
     Indication: MULTIPLE SCLEROSIS
     Dosage: 1 CAP, BID
     Route: 048
     Dates: start: 201109, end: 20110913
  8. OXCARBAZEPINE. [Concomitant]
     Active Substance: OXCARBAZEPINE
  9. PROMETHAZINE [Concomitant]
     Active Substance: PROMETHAZINE\PROMETHAZINE HYDROCHLORIDE
  10. TYSABRI [Concomitant]
     Active Substance: NATALIZUMAB
  11. HYDROCODONE/IBUPROFEN [Concomitant]
     Active Substance: HYDROCODONE\IBUPROFEN
  12. NUEDEXTA [Suspect]
     Active Substance: DEXTROMETHORPHAN HYDROBROMIDE\QUINIDINE SULFATE
     Dosage: 1 CAP, QD
     Route: 048
     Dates: start: 201109, end: 201109
  13. FENTANYL. [Suspect]
     Active Substance: FENTANYL
     Indication: MULTIPLE SCLEROSIS
     Dosage: 25 MCG, Q72H
     Route: 062
     Dates: start: 20110902, end: 201109
  14. PAXIL [Concomitant]
     Active Substance: PAROXETINE HYDROCHLORIDE
     Indication: ANXIETY DISORDER

REACTIONS (18)
  - Abdominal distension [Recovered/Resolved]
  - Aphasia [Recovered/Resolved]
  - Dysarthria [Recovered/Resolved]
  - Disturbance in attention [Recovered/Resolved]
  - Dysuria [Recovering/Resolving]
  - Cold sweat [Recovered/Resolved]
  - Bedridden [Recovered/Resolved]
  - Delirium tremens [None]
  - Swelling face [Recovered/Resolved]
  - Lip swelling [Recovered/Resolved]
  - Anger [Recovered/Resolved]
  - Dehydration [Recovered/Resolved]
  - Constipation [Recovered/Resolved]
  - Confusional state [Recovered/Resolved]
  - Chapped lips [Recovered/Resolved]
  - Pollakiuria [Recovering/Resolving]
  - Hypervigilance [Recovered/Resolved]
  - Peripheral swelling [Recovered/Resolved]

NARRATIVE: CASE EVENT DATE: 201109
